FAERS Safety Report 21978498 (Version 1)
Quarter: 2023Q1

REPORT INFORMATION
  Report Type: Spontaneous
  Country: US (occurrence: US)
  Receive Date: 20230210
  Receipt Date: 20230210
  Transmission Date: 20230417
  Serious: Yes (Hospitalization)
  Sender: FDA-Public Use
  Company Number: US-BAYER-2023A016386

PATIENT
  Age: 58 Year
  Sex: Male
  Weight: 134.26 kg

DRUGS (23)
  1. ASPIRIN [Suspect]
     Active Substance: ASPIRIN
     Indication: Prophylaxis
     Dosage: 81 MG, QD
     Route: 048
     Dates: start: 20200521, end: 20221015
  2. PRASUGREL [Suspect]
     Active Substance: PRASUGREL
     Indication: Anticoagulant therapy
     Dosage: 10 MG, QD
     Route: 048
     Dates: start: 202202, end: 20220923
  3. OMEPRAZOLE [Concomitant]
     Active Substance: OMEPRAZOLE
     Indication: Gastrooesophageal reflux disease
     Dosage: 20 MG, QD
     Route: 048
     Dates: start: 20210914
  4. LANTUS [Concomitant]
     Active Substance: INSULIN GLARGINE
     Indication: Type 2 diabetes mellitus
     Dosage: 36 U, BID
     Route: 058
     Dates: start: 20210929
  5. EMPAGLIFLOZIN [Concomitant]
     Active Substance: EMPAGLIFLOZIN
     Indication: Type 2 diabetes mellitus
     Dosage: 12.5 MG, BID
     Route: 048
     Dates: start: 20201228
  6. METFORMIN [Concomitant]
     Active Substance: METFORMIN HYDROCHLORIDE
     Indication: Type 2 diabetes mellitus
     Dosage: 1000 MG, BID
     Route: 048
     Dates: start: 20201228
  7. NITROGLYCERIN [Concomitant]
     Active Substance: NITROGLYCERIN
     Indication: Angina pectoris
     Dosage: 0.4 MG DAILY, PRN
     Route: 048
     Dates: start: 20210914
  8. CARVEDILOL [Concomitant]
     Active Substance: CARVEDILOL
     Indication: Hypertension
     Dosage: 3.125 MG, BID
     Route: 048
     Dates: start: 20151013
  9. VITAMIN D NOS [Concomitant]
     Active Substance: VITAMIN D NOS
     Indication: Vitamin D deficiency
     Dosage: 50000 U, QD
     Route: 048
     Dates: start: 20150717
  10. AMLODIPINE [Concomitant]
     Active Substance: AMLODIPINE BESYLATE
     Indication: Hypertension
     Dosage: 10 MG, QD
     Route: 048
     Dates: start: 20201228
  11. ROSUVASTATIN [Concomitant]
     Active Substance: ROSUVASTATIN
     Indication: Hyperlipidaemia
     Dosage: 20 MG, QD
     Route: 048
     Dates: start: 20201228
  12. EZETIMIBE [Concomitant]
     Active Substance: EZETIMIBE
     Indication: Hyperlipidaemia
     Dosage: 10 MG, QD
     Route: 048
     Dates: start: 20200805
  13. TYLENOL [Concomitant]
     Active Substance: ACETAMINOPHEN
     Indication: Back pain
     Dosage: 325 MG DAILY, PRN
     Route: 048
     Dates: start: 199801, end: 20221015
  14. TYLENOL [Concomitant]
     Active Substance: ACETAMINOPHEN
     Indication: Back pain
     Route: 048
     Dates: start: 199801
  15. TYLENOL [Concomitant]
     Active Substance: ACETAMINOPHEN
     Indication: Back pain
     Route: 048
     Dates: start: 199801
  16. TYLENOL [Concomitant]
     Active Substance: ACETAMINOPHEN
     Indication: Back pain
     Route: 048
     Dates: start: 199801
  17. FENTANYL [Concomitant]
     Active Substance: FENTANYL
  18. MIDAZOLAM [Concomitant]
     Active Substance: MIDAZOLAM
  19. HEPARIN [Concomitant]
     Active Substance: HEPARIN SODIUM
  20. BACITRACIN [Concomitant]
     Active Substance: BACITRACIN
  21. LIDOCAINE [Concomitant]
     Active Substance: LIDOCAINE
  22. IOPAMIDOL [Concomitant]
     Active Substance: IOPAMIDOL
  23. MORPHINE [Concomitant]
     Active Substance: MORPHINE

REACTIONS (1)
  - Gastrointestinal haemorrhage [Recovered/Resolved]

NARRATIVE: CASE EVENT DATE: 20220922
